FAERS Safety Report 7539819-7 (Version None)
Quarter: 2011Q2

REPORT INFORMATION
  Report Type: 
  Country: None (occurrence: None)
  Receive Date: 20110609
  Receipt Date: 20110609
  Transmission Date: 20111010
  Serious: Yes (Hospitalization)
  Sender: FDA-Public Use
  Company Number: None

PATIENT
  Age: 72 Year
  Sex: Female
  Weight: 63.5036 kg

DRUGS (3)
  1. LOVASTATIN [Concomitant]
  2. OMEPRAZOLE [Concomitant]
  3. BENICAR [Suspect]
     Indication: HYPERTENSION
     Dosage: 20MGS ONCE PO
     Route: 048

REACTIONS (8)
  - DEHYDRATION [None]
  - TETANY [None]
  - COLITIS [None]
  - DIARRHOEA [None]
  - GASTROINTESTINAL DISORDER [None]
  - VOMITING [None]
  - WEIGHT DECREASED [None]
  - RENAL FAILURE [None]
